FAERS Safety Report 11068108 (Version 2)
Quarter: 2015Q3

REPORT INFORMATION
  Report Type: Spontaneous
  Country: SE (occurrence: SE)
  Receive Date: 20150427
  Receipt Date: 20150708
  Transmission Date: 20151125
  Serious: Yes (Other)
  Sender: FDA-Public Use
  Company Number: SE-JNJFOC-20150413631

PATIENT
  Age: 30 Year
  Sex: Male

DRUGS (1)
  1. CONCERTA [Suspect]
     Active Substance: METHYLPHENIDATE HYDROCHLORIDE
     Indication: ATTENTION DEFICIT/HYPERACTIVITY DISORDER
     Dosage: ESCALATION UNTIL 10 OCT 2014 WITH 18 MG/WEEK.
     Route: 048
     Dates: start: 20140903, end: 20141010

REACTIONS (3)
  - Drug dose omission [Unknown]
  - Incorrect dose administered [Unknown]
  - Urinary retention [Recovering/Resolving]
